FAERS Safety Report 25714863 (Version 2)
Quarter: 2025Q3

REPORT INFORMATION
  Report Type: Spontaneous
  Country: CA (occurrence: CA)
  Receive Date: 20250822
  Receipt Date: 20250916
  Transmission Date: 20251021
  Serious: Yes (Life-Threatening, Hospitalization, Disabling, Other)
  Sender: BRISTOL-MYERS SQUIBB COMPANY
  Company Number: CA-BRISTOL-MYERS SQUIBB COMPANY-2025-113507

PATIENT
  Age: 43 Year
  Sex: Female
  Weight: 96 kg

DRUGS (312)
  1. ORENCIA [Suspect]
     Active Substance: ABATACEPT
     Indication: Rheumatoid arthritis
  2. ORENCIA [Suspect]
     Active Substance: ABATACEPT
     Indication: Product used for unknown indication
  3. ORENCIA [Suspect]
     Active Substance: ABATACEPT
  4. ORENCIA [Suspect]
     Active Substance: ABATACEPT
  5. ORENCIA [Suspect]
     Active Substance: ABATACEPT
     Indication: Product used for unknown indication
  6. ORENCIA [Suspect]
     Active Substance: ABATACEPT
     Indication: Product used for unknown indication
  7. ORENCIA [Suspect]
     Active Substance: ABATACEPT
  8. ORENCIA [Suspect]
     Active Substance: ABATACEPT
     Indication: Product used for unknown indication
  9. ORENCIA [Suspect]
     Active Substance: ABATACEPT
  10. ORENCIA [Suspect]
     Active Substance: ABATACEPT
  11. ACETAMINOPHEN\CODEINE PHOSPHATE [Concomitant]
     Active Substance: ACETAMINOPHEN\CODEINE PHOSPHATE
     Indication: Product used for unknown indication
  12. ACTEMRA [Concomitant]
     Active Substance: TOCILIZUMAB
     Indication: Rheumatoid arthritis
  13. ACTEMRA [Concomitant]
     Active Substance: TOCILIZUMAB
  14. ACTEMRA [Concomitant]
     Active Substance: TOCILIZUMAB
  15. ACTEMRA [Concomitant]
     Active Substance: TOCILIZUMAB
  16. ACTEMRA [Concomitant]
     Active Substance: TOCILIZUMAB
  17. ACTEMRA [Concomitant]
     Active Substance: TOCILIZUMAB
  18. ACTEMRA [Concomitant]
     Active Substance: TOCILIZUMAB
  19. ACTEMRA [Concomitant]
     Active Substance: TOCILIZUMAB
  20. ACTEMRA [Concomitant]
     Active Substance: TOCILIZUMAB
  21. ACTEMRA [Concomitant]
     Active Substance: TOCILIZUMAB
  22. ACTEMRA [Concomitant]
     Active Substance: TOCILIZUMAB
  23. ACTEMRA [Concomitant]
     Active Substance: TOCILIZUMAB
  24. ACTEMRA [Concomitant]
     Active Substance: TOCILIZUMAB
  25. ACTEMRA [Concomitant]
     Active Substance: TOCILIZUMAB
  26. ACTEMRA [Concomitant]
     Active Substance: TOCILIZUMAB
  27. ACTEMRA [Concomitant]
     Active Substance: TOCILIZUMAB
  28. ACTEMRA [Concomitant]
     Active Substance: TOCILIZUMAB
  29. ACTEMRA [Concomitant]
     Active Substance: TOCILIZUMAB
  30. AIMOVIG [Concomitant]
     Active Substance: ERENUMAB-AOOE
     Indication: Rheumatoid arthritis
  31. AIMOVIG [Concomitant]
     Active Substance: ERENUMAB-AOOE
  32. ALENDRONATE SODIUM\CHOLECALCIFEROL [Concomitant]
     Active Substance: ALENDRONATE SODIUM\CHOLECALCIFEROL
     Indication: Rheumatoid arthritis
  33. APREPITANT [Concomitant]
     Active Substance: APREPITANT
     Indication: Product used for unknown indication
  34. ACETAMINOPHEN\CAFFEINE\CODEINE PHOSPHATE [Concomitant]
     Active Substance: ACETAMINOPHEN\CAFFEINE\CODEINE PHOSPHATE
     Indication: Product used for unknown indication
  35. AZATHIOPRINE [Concomitant]
     Active Substance: AZATHIOPRINE
     Indication: Product used for unknown indication
  36. BETAMETHASONE [Concomitant]
     Active Substance: BETAMETHASONE
     Indication: Product used for unknown indication
  37. BOTULINUM TOXIN TYPE A [Concomitant]
     Active Substance: BOTULINUM TOXIN TYPE A
     Indication: Product used for unknown indication
  38. BUPRENORPHINE [Concomitant]
     Active Substance: BUPRENORPHINE
     Indication: Product used for unknown indication
  39. BUTRANS [Concomitant]
     Active Substance: BUPRENORPHINE
     Indication: Product used for unknown indication
  40. CANDESARTAN [Concomitant]
     Active Substance: CANDESARTAN
     Indication: Rheumatoid arthritis
  41. CANDESARTAN [Concomitant]
     Active Substance: CANDESARTAN
     Indication: Migraine
  42. CETIRIZINE [Concomitant]
     Active Substance: CETIRIZINE HYDROCHLORIDE
     Indication: Rheumatoid arthritis
  43. CETIRIZINE [Concomitant]
     Active Substance: CETIRIZINE HYDROCHLORIDE
  44. CETIRIZINE [Concomitant]
     Active Substance: CETIRIZINE HYDROCHLORIDE
  45. CETIRIZINE [Concomitant]
     Active Substance: CETIRIZINE HYDROCHLORIDE
  46. CETIRIZINE [Concomitant]
     Active Substance: CETIRIZINE HYDROCHLORIDE
  47. CETIRIZINE [Concomitant]
     Active Substance: CETIRIZINE HYDROCHLORIDE
  48. CETIRIZINE [Concomitant]
     Active Substance: CETIRIZINE HYDROCHLORIDE
  49. CETIRIZINE [Concomitant]
     Active Substance: CETIRIZINE HYDROCHLORIDE
  50. CETIRIZINE [Concomitant]
     Active Substance: CETIRIZINE HYDROCHLORIDE
  51. CETIRIZINE [Concomitant]
     Active Substance: CETIRIZINE HYDROCHLORIDE
  52. CETIRIZINE [Concomitant]
     Active Substance: CETIRIZINE HYDROCHLORIDE
  53. CETIRIZINE [Concomitant]
     Active Substance: CETIRIZINE HYDROCHLORIDE
  54. CETIRIZINE [Concomitant]
     Active Substance: CETIRIZINE HYDROCHLORIDE
  55. CIMZIA [Concomitant]
     Active Substance: CERTOLIZUMAB PEGOL
     Indication: Rheumatoid arthritis
  56. CIMZIA [Concomitant]
     Active Substance: CERTOLIZUMAB PEGOL
     Indication: Psoriasis
  57. CIMZIA [Concomitant]
     Active Substance: CERTOLIZUMAB PEGOL
  58. CIMZIA [Concomitant]
     Active Substance: CERTOLIZUMAB PEGOL
  59. CLIOQUINOL [Concomitant]
     Active Substance: CLIOQUINOL
     Indication: Product used for unknown indication
  60. COSENTYX [Concomitant]
     Active Substance: SECUKINUMAB
     Indication: Psoriatic arthropathy
  61. COSENTYX [Concomitant]
     Active Substance: SECUKINUMAB
  62. DESOGESTREL\ETHINYL ESTRADIOL [Concomitant]
     Active Substance: DESOGESTREL\ETHINYL ESTRADIOL
     Indication: Product used for unknown indication
  63. DESOXIMETASONE [Concomitant]
     Active Substance: DESOXIMETASONE
     Indication: Rheumatoid arthritis
  64. DESOXIMETASONE [Concomitant]
     Active Substance: DESOXIMETASONE
  65. DESOXIMETASONE [Concomitant]
     Active Substance: DESOXIMETASONE
  66. DESOXIMETASONE [Concomitant]
     Active Substance: DESOXIMETASONE
  67. DESOXIMETASONE [Concomitant]
     Active Substance: DESOXIMETASONE
  68. DESOXIMETASONE [Concomitant]
     Active Substance: DESOXIMETASONE
  69. DESOXIMETASONE [Concomitant]
     Active Substance: DESOXIMETASONE
  70. DESOXIMETASONE [Concomitant]
     Active Substance: DESOXIMETASONE
  71. DESOXIMETASONE [Concomitant]
     Active Substance: DESOXIMETASONE
  72. DESOXIMETASONE [Concomitant]
     Active Substance: DESOXIMETASONE
  73. DESOXIMETASONE [Concomitant]
     Active Substance: DESOXIMETASONE
  74. DESOXIMETASONE [Concomitant]
     Active Substance: DESOXIMETASONE
  75. DESOXIMETASONE [Concomitant]
     Active Substance: DESOXIMETASONE
  76. DESOXIMETASONE [Concomitant]
     Active Substance: DESOXIMETASONE
  77. DESOXIMETASONE [Concomitant]
     Active Substance: DESOXIMETASONE
  78. DESOXIMETASONE [Concomitant]
     Active Substance: DESOXIMETASONE
  79. DESOXIMETASONE [Concomitant]
     Active Substance: DESOXIMETASONE
  80. DESOXIMETASONE [Concomitant]
     Active Substance: DESOXIMETASONE
  81. DESOXIMETASONE [Concomitant]
     Active Substance: DESOXIMETASONE
  82. DESOXIMETASONE [Concomitant]
     Active Substance: DESOXIMETASONE
  83. DESOXIMETASONE [Concomitant]
     Active Substance: DESOXIMETASONE
  84. DESOXIMETASONE [Concomitant]
     Active Substance: DESOXIMETASONE
  85. DESOXIMETASONE [Concomitant]
     Active Substance: DESOXIMETASONE
  86. DESOXIMETASONE [Concomitant]
     Active Substance: DESOXIMETASONE
  87. DESOXIMETASONE [Concomitant]
     Active Substance: DESOXIMETASONE
  88. DESOXIMETASONE [Concomitant]
     Active Substance: DESOXIMETASONE
  89. DESOXIMETASONE [Concomitant]
     Active Substance: DESOXIMETASONE
  90. DICLOFENAC [Concomitant]
     Active Substance: DICLOFENAC
     Indication: Rheumatoid arthritis
  91. DICLOFENAC [Concomitant]
     Active Substance: DICLOFENAC
  92. DICLOFENAC [Concomitant]
     Active Substance: DICLOFENAC
  93. DICLOFENAC SODIUM [Concomitant]
     Active Substance: DICLOFENAC SODIUM
     Indication: Product used for unknown indication
  94. DICLOFENAC SODIUM [Concomitant]
     Active Substance: DICLOFENAC SODIUM
  95. DOMPERIDONE [Concomitant]
     Active Substance: DOMPERIDONE
     Indication: Product used for unknown indication
  96. ERELZI [Concomitant]
     Active Substance: ETANERCEPT-SZZS
     Indication: Rheumatoid arthritis
  97. ERELZI [Concomitant]
     Active Substance: ETANERCEPT-SZZS
  98. ERELZI [Concomitant]
     Active Substance: ETANERCEPT-SZZS
  99. ERELZI [Concomitant]
     Active Substance: ETANERCEPT-SZZS
  100. ERELZI [Concomitant]
     Active Substance: ETANERCEPT-SZZS
  101. ERELZI [Concomitant]
     Active Substance: ETANERCEPT-SZZS
  102. ERELZI [Concomitant]
     Active Substance: ETANERCEPT-SZZS
  103. ERELZI [Concomitant]
     Active Substance: ETANERCEPT-SZZS
  104. ERELZI [Concomitant]
     Active Substance: ETANERCEPT-SZZS
  105. ERELZI [Concomitant]
     Active Substance: ETANERCEPT-SZZS
  106. ERELZI [Concomitant]
     Active Substance: ETANERCEPT-SZZS
  107. ERELZI [Concomitant]
     Active Substance: ETANERCEPT-SZZS
  108. FOLIC ACID [Concomitant]
     Active Substance: FOLIC ACID
     Indication: Rheumatoid arthritis
  109. FOLIC ACID [Concomitant]
     Active Substance: FOLIC ACID
  110. FOLIC ACID [Concomitant]
     Active Substance: FOLIC ACID
  111. FOLIC ACID [Concomitant]
     Active Substance: FOLIC ACID
  112. FOLIC ACID [Concomitant]
     Active Substance: FOLIC ACID
  113. FOLIC ACID [Concomitant]
     Active Substance: FOLIC ACID
  114. FOLIC ACID [Concomitant]
     Active Substance: FOLIC ACID
  115. FOLIC ACID [Concomitant]
     Active Substance: FOLIC ACID
  116. FOLIC ACID [Concomitant]
     Active Substance: FOLIC ACID
  117. FOLIC ACID [Concomitant]
     Active Substance: FOLIC ACID
  118. FOLIC ACID [Concomitant]
     Active Substance: FOLIC ACID
  119. FOLIC ACID [Concomitant]
     Active Substance: FOLIC ACID
  120. FOLIC ACID [Concomitant]
     Active Substance: FOLIC ACID
  121. FOLIC ACID [Concomitant]
     Active Substance: FOLIC ACID
  122. FOLIC ACID [Concomitant]
     Active Substance: FOLIC ACID
  123. FOLIC ACID [Concomitant]
     Active Substance: FOLIC ACID
  124. FOLIC ACID [Concomitant]
     Active Substance: FOLIC ACID
  125. FOLIC ACID [Concomitant]
     Active Substance: FOLIC ACID
  126. FOSAMAX [Concomitant]
     Active Substance: ALENDRONATE SODIUM
     Indication: Rheumatoid arthritis
  127. FOSAMAX [Concomitant]
     Active Substance: ALENDRONATE SODIUM
  128. FOSAMAX [Concomitant]
     Active Substance: ALENDRONATE SODIUM
  129. FOSAMAX [Concomitant]
     Active Substance: ALENDRONATE SODIUM
  130. HYDROMORPHONE HYDROCHLORIDE [Concomitant]
     Active Substance: HYDROMORPHONE HYDROCHLORIDE
     Indication: Product used for unknown indication
  131. HYDROXYCHLOROQUINE [Concomitant]
     Active Substance: HYDROXYCHLOROQUINE
     Indication: Rheumatoid arthritis
  132. HYDROXYCHLOROQUINE [Concomitant]
     Active Substance: HYDROXYCHLOROQUINE
  133. HYDROXYCHLOROQUINE [Concomitant]
     Active Substance: HYDROXYCHLOROQUINE
  134. HYDROXYCHLOROQUINE [Concomitant]
     Active Substance: HYDROXYCHLOROQUINE
  135. HYDROXYCHLOROQUINE [Concomitant]
     Active Substance: HYDROXYCHLOROQUINE
  136. HYDROXYCHLOROQUINE [Concomitant]
     Active Substance: HYDROXYCHLOROQUINE
  137. HYDROXYCHLOROQUINE [Concomitant]
     Active Substance: HYDROXYCHLOROQUINE
  138. HYDROXYCHLOROQUINE [Concomitant]
     Active Substance: HYDROXYCHLOROQUINE
  139. HYDROXYCHLOROQUINE [Concomitant]
     Active Substance: HYDROXYCHLOROQUINE
  140. HYDROXYCHLOROQUINE [Concomitant]
     Active Substance: HYDROXYCHLOROQUINE
  141. HYDROXYCHLOROQUINE [Concomitant]
     Active Substance: HYDROXYCHLOROQUINE
  142. HYDROXYCHLOROQUINE [Concomitant]
     Active Substance: HYDROXYCHLOROQUINE
  143. HYDROXYCHLOROQUINE [Concomitant]
     Active Substance: HYDROXYCHLOROQUINE
  144. HYDROXYCHLOROQUINE [Concomitant]
     Active Substance: HYDROXYCHLOROQUINE
  145. HYDROXYCHLOROQUINE [Concomitant]
     Active Substance: HYDROXYCHLOROQUINE
  146. HYRIMOZ [Concomitant]
     Active Substance: ADALIMUMAB-ADAZ
     Indication: Rheumatoid arthritis
  147. HYRIMOZ [Concomitant]
     Active Substance: ADALIMUMAB-ADAZ
  148. HYRIMOZ [Concomitant]
     Active Substance: ADALIMUMAB-ADAZ
  149. HYRIMOZ [Concomitant]
     Active Substance: ADALIMUMAB-ADAZ
  150. HYRIMOZ [Concomitant]
     Active Substance: ADALIMUMAB-ADAZ
  151. HYRIMOZ [Concomitant]
     Active Substance: ADALIMUMAB-ADAZ
  152. HYRIMOZ [Concomitant]
     Active Substance: ADALIMUMAB-ADAZ
  153. HYRIMOZ [Concomitant]
     Active Substance: ADALIMUMAB-ADAZ
  154. HYRIMOZ [Concomitant]
     Active Substance: ADALIMUMAB-ADAZ
  155. HYRIMOZ [Concomitant]
     Active Substance: ADALIMUMAB-ADAZ
  156. HYRIMOZ [Concomitant]
     Active Substance: ADALIMUMAB-ADAZ
  157. HYRIMOZ [Concomitant]
     Active Substance: ADALIMUMAB-ADAZ
  158. HYRIMOZ [Concomitant]
     Active Substance: ADALIMUMAB-ADAZ
  159. HYRIMOZ [Concomitant]
     Active Substance: ADALIMUMAB-ADAZ
  160. INFLIXIMAB [Concomitant]
     Active Substance: INFLIXIMAB
     Indication: Rheumatoid arthritis
  161. INFLIXIMAB [Concomitant]
     Active Substance: INFLIXIMAB
     Indication: Psoriatic arthropathy
  162. INFLIXIMAB [Concomitant]
     Active Substance: INFLIXIMAB
     Indication: Product used for unknown indication
  163. INFLIXIMAB [Concomitant]
     Active Substance: INFLIXIMAB
     Indication: Colitis ulcerative
  164. INFLIXIMAB [Concomitant]
     Active Substance: INFLIXIMAB
  165. INFLIXIMAB [Concomitant]
     Active Substance: INFLIXIMAB
  166. INFLIXIMAB [Concomitant]
     Active Substance: INFLIXIMAB
  167. LISINOPRIL [Concomitant]
     Active Substance: LISINOPRIL
     Indication: Product used for unknown indication
  168. MAGNESIUM CHLORIDE [Concomitant]
     Active Substance: MAGNESIUM CHLORIDE
     Indication: Product used for unknown indication
  169. MAGNESIUM CHLORIDE [Concomitant]
     Active Substance: MAGNESIUM CHLORIDE
  170. METHOTREXATE [Concomitant]
     Active Substance: METHOTREXATE
     Indication: Rheumatoid arthritis
  171. METHOTREXATE [Concomitant]
     Active Substance: METHOTREXATE
  172. METHOTREXATE [Concomitant]
     Active Substance: METHOTREXATE
  173. METHOTREXATE [Concomitant]
     Active Substance: METHOTREXATE
  174. METHOTREXATE [Concomitant]
     Active Substance: METHOTREXATE
  175. METHOTREXATE [Concomitant]
     Active Substance: METHOTREXATE
  176. METHOTREXATE [Concomitant]
     Active Substance: METHOTREXATE
  177. METHOTREXATE [Concomitant]
     Active Substance: METHOTREXATE
  178. METHOTREXATE [Concomitant]
     Active Substance: METHOTREXATE
  179. METHOTREXATE [Concomitant]
     Active Substance: METHOTREXATE
  180. METHOTREXATE [Concomitant]
     Active Substance: METHOTREXATE
  181. METHOTREXATE [Concomitant]
     Active Substance: METHOTREXATE
  182. METHOTREXATE [Concomitant]
     Active Substance: METHOTREXATE
  183. METHOTREXATE [Concomitant]
     Active Substance: METHOTREXATE
  184. METHOTREXATE [Concomitant]
     Active Substance: METHOTREXATE
  185. METHOTREXATE [Concomitant]
     Active Substance: METHOTREXATE
  186. METHOTREXATE [Concomitant]
     Active Substance: METHOTREXATE
  187. METHOTREXATE [Concomitant]
     Active Substance: METHOTREXATE
  188. METHOTREXATE [Concomitant]
     Active Substance: METHOTREXATE
  189. METHOTREXATE [Concomitant]
     Active Substance: METHOTREXATE
  190. METHOTREXATE [Concomitant]
     Active Substance: METHOTREXATE
  191. METHOTREXATE [Concomitant]
     Active Substance: METHOTREXATE
  192. METHOTREXATE [Concomitant]
     Active Substance: METHOTREXATE
  193. METHOTREXATE [Concomitant]
     Active Substance: METHOTREXATE
  194. METHOTREXATE [Concomitant]
     Active Substance: METHOTREXATE
  195. METHOTREXATE [Concomitant]
     Active Substance: METHOTREXATE
  196. METHOTREXATE [Concomitant]
     Active Substance: METHOTREXATE
  197. METHOTREXATE [Concomitant]
     Active Substance: METHOTREXATE
  198. METHOTREXATE [Concomitant]
     Active Substance: METHOTREXATE
  199. METHOTREXATE [Concomitant]
     Active Substance: METHOTREXATE
  200. METHOTREXATE [Concomitant]
     Active Substance: METHOTREXATE
  201. METHOTREXATE [Concomitant]
     Active Substance: METHOTREXATE
  202. METHOTREXATE [Concomitant]
     Active Substance: METHOTREXATE
  203. OXYCODONE [Concomitant]
     Active Substance: OXYCODONE
     Indication: Product used for unknown indication
  204. OXYCODONE HYDROCHLORIDE [Concomitant]
     Active Substance: OXYCODONE HYDROCHLORIDE
     Indication: Product used for unknown indication
  205. PHENYLEPHRINE HYDROCHLORIDE [Concomitant]
     Active Substance: PHENYLEPHRINE HYDROCHLORIDE
     Indication: Product used for unknown indication
  206. PHENYLEPHRINE HYDROCHLORIDE [Concomitant]
     Active Substance: PHENYLEPHRINE HYDROCHLORIDE
  207. PHOSPHORUS [Concomitant]
     Active Substance: PHOSPHORUS
     Indication: Product used for unknown indication
  208. RITUXIMAB [Concomitant]
     Active Substance: RITUXIMAB
     Indication: Rheumatoid arthritis
  209. RITUXIMAB [Concomitant]
     Active Substance: RITUXIMAB
     Indication: Abdominal discomfort
  210. RITUXIMAB [Concomitant]
     Active Substance: RITUXIMAB
  211. RITUXIMAB [Concomitant]
     Active Substance: RITUXIMAB
  212. RITUXIMAB [Concomitant]
     Active Substance: RITUXIMAB
  213. RITUXIMAB [Concomitant]
     Active Substance: RITUXIMAB
  214. RITUXIMAB [Concomitant]
     Active Substance: RITUXIMAB
  215. RITUXIMAB [Concomitant]
     Active Substance: RITUXIMAB
  216. RITUXIMAB [Concomitant]
     Active Substance: RITUXIMAB
  217. RITUXIMAB [Concomitant]
     Active Substance: RITUXIMAB
  218. RITUXIMAB [Concomitant]
     Active Substance: RITUXIMAB
  219. RITUXIMAB [Concomitant]
     Active Substance: RITUXIMAB
  220. RITUXIMAB [Concomitant]
     Active Substance: RITUXIMAB
  221. RITUXIMAB [Concomitant]
     Active Substance: RITUXIMAB
  222. RITUXIMAB [Concomitant]
     Active Substance: RITUXIMAB
  223. RITUXIMAB [Concomitant]
     Active Substance: RITUXIMAB
  224. RITUXIMAB [Concomitant]
     Active Substance: RITUXIMAB
  225. RITUXIMAB [Concomitant]
     Active Substance: RITUXIMAB
  226. APREMILAST [Concomitant]
     Active Substance: APREMILAST
     Indication: Product used for unknown indication
  227. APREMILAST [Concomitant]
     Active Substance: APREMILAST
  228. ATOMOXETINE HYDROCHLORIDE [Concomitant]
     Active Substance: ATOMOXETINE HYDROCHLORIDE
     Indication: Product used for unknown indication
  229. ATOMOXETINE HYDROCHLORIDE [Concomitant]
     Active Substance: ATOMOXETINE HYDROCHLORIDE
     Indication: Migraine
  230. ATOMOXETINE HYDROCHLORIDE [Concomitant]
     Active Substance: ATOMOXETINE HYDROCHLORIDE
  231. LEFLUNOMIDE [Concomitant]
     Active Substance: LEFLUNOMIDE
     Indication: Rheumatoid arthritis
  232. LEFLUNOMIDE [Concomitant]
     Active Substance: LEFLUNOMIDE
  233. LEFLUNOMIDE [Concomitant]
     Active Substance: LEFLUNOMIDE
  234. LEFLUNOMIDE [Concomitant]
     Active Substance: LEFLUNOMIDE
  235. LEFLUNOMIDE [Concomitant]
     Active Substance: LEFLUNOMIDE
  236. LEFLUNOMIDE [Concomitant]
     Active Substance: LEFLUNOMIDE
  237. LEFLUNOMIDE [Concomitant]
     Active Substance: LEFLUNOMIDE
  238. LEFLUNOMIDE [Concomitant]
     Active Substance: LEFLUNOMIDE
  239. LEFLUNOMIDE [Concomitant]
     Active Substance: LEFLUNOMIDE
  240. LEFLUNOMIDE [Concomitant]
     Active Substance: LEFLUNOMIDE
  241. LEFLUNOMIDE [Concomitant]
     Active Substance: LEFLUNOMIDE
  242. LEFLUNOMIDE [Concomitant]
     Active Substance: LEFLUNOMIDE
  243. LEFLUNOMIDE [Concomitant]
     Active Substance: LEFLUNOMIDE
  244. LEFLUNOMIDE [Concomitant]
     Active Substance: LEFLUNOMIDE
  245. LEFLUNOMIDE [Concomitant]
     Active Substance: LEFLUNOMIDE
  246. MYCOPHENOLATE MOFETIL [Concomitant]
     Active Substance: MYCOPHENOLATE MOFETIL
     Indication: Rheumatoid arthritis
  247. MYCOPHENOLATE MOFETIL [Concomitant]
     Active Substance: MYCOPHENOLATE MOFETIL
     Indication: Product used for unknown indication
  248. PANTOPRAZOLE SODIUM [Concomitant]
     Active Substance: PANTOPRAZOLE SODIUM
     Indication: Product used for unknown indication
  249. PANTOPRAZOLE SODIUM [Concomitant]
     Active Substance: PANTOPRAZOLE SODIUM
  250. PANTOPRAZOLE SODIUM [Concomitant]
     Active Substance: PANTOPRAZOLE SODIUM
  251. PANTOPRAZOLE SODIUM [Concomitant]
     Active Substance: PANTOPRAZOLE SODIUM
  252. SULFASALAZINE [Concomitant]
     Active Substance: SULFASALAZINE
     Indication: Product used for unknown indication
  253. SULFASALAZINE [Concomitant]
     Active Substance: SULFASALAZINE
  254. SULFASALAZINE [Concomitant]
     Active Substance: SULFASALAZINE
  255. SULFASALAZINE [Concomitant]
     Active Substance: SULFASALAZINE
  256. SULFASALAZINE [Concomitant]
     Active Substance: SULFASALAZINE
  257. SULFASALAZINE [Concomitant]
     Active Substance: SULFASALAZINE
  258. SULFASALAZINE [Concomitant]
     Active Substance: SULFASALAZINE
  259. SULFASALAZINE [Concomitant]
     Active Substance: SULFASALAZINE
  260. SULFASALAZINE [Concomitant]
     Active Substance: SULFASALAZINE
  261. SULFASALAZINE [Concomitant]
     Active Substance: SULFASALAZINE
  262. SULFATHIAZOLE [Concomitant]
     Active Substance: SULFATHIAZOLE
     Indication: Product used for unknown indication
  263. TRIAMCINOLONE [Concomitant]
     Active Substance: TRIAMCINOLONE
     Indication: Product used for unknown indication
  264. TRIAMCINOLONE [Concomitant]
     Active Substance: TRIAMCINOLONE
  265. VITAMIN C [Concomitant]
     Active Substance: ASCORBIC ACID
     Indication: Product used for unknown indication
  266. VOLTAREN [Concomitant]
     Active Substance: DICLOFENAC SODIUM
     Indication: Product used for unknown indication
  267. VOLTAREN [Concomitant]
     Active Substance: DICLOFENAC SODIUM
  268. AZULFIDINE [Concomitant]
     Active Substance: SULFASALAZINE
     Indication: Product used for unknown indication
  269. BERINERT [Concomitant]
     Active Substance: HUMAN C1-ESTERASE INHIBITOR
     Indication: Product used for unknown indication
  270. BUPRENORPHINE HYDROCHLORIDE [Concomitant]
     Active Substance: BUPRENORPHINE HYDROCHLORIDE
     Indication: Product used for unknown indication
  271. CALCIUM ASCORBATE [Concomitant]
     Active Substance: CALCIUM ASCORBATE
     Indication: Product used for unknown indication
  272. CHOLECALCIFEROL [Concomitant]
     Active Substance: CHOLECALCIFEROL
     Indication: Rheumatoid arthritis
  273. CHOLECALCIFEROL [Concomitant]
     Active Substance: CHOLECALCIFEROL
  274. CYCLOBENZAPRINE [Concomitant]
     Active Substance: CYCLOBENZAPRINE
     Indication: Product used for unknown indication
  275. ERGOCALCIFEROL [Concomitant]
     Active Substance: ERGOCALCIFEROL
     Indication: Rheumatoid arthritis
  276. FINACEA [Concomitant]
     Active Substance: AZELAIC ACID
     Indication: Rheumatoid arthritis
  277. FLUMETHASONE PIVALATE [Concomitant]
     Active Substance: FLUMETHASONE PIVALATE
     Indication: Rheumatoid arthritis
  278. FLUMETHASONE PIVALATE [Concomitant]
     Active Substance: FLUMETHASONE PIVALATE
  279. FLUTICASONE [Concomitant]
     Active Substance: FLUTICASONE
     Indication: Product used for unknown indication
  280. FLUTICASONE PROPIONATE [Concomitant]
     Active Substance: FLUTICASONE PROPIONATE
     Indication: Product used for unknown indication
  281. GOLD SODIUM THIOMALATE [Concomitant]
     Active Substance: GOLD SODIUM THIOMALATE
     Indication: Product used for unknown indication
  282. LAMOTRIGINE [Concomitant]
     Active Substance: LAMOTRIGINE
     Indication: Product used for unknown indication
  283. LAMOTRIGINE [Concomitant]
     Active Substance: LAMOTRIGINE
  284. LEVOMILNACIPRAN [Concomitant]
     Active Substance: LEVOMILNACIPRAN
     Indication: Product used for unknown indication
  285. MAGNESIUM CHLORIDE [Concomitant]
     Active Substance: MAGNESIUM CHLORIDE
     Indication: Product used for unknown indication
  286. MAGNESIUM CHLORIDE [Concomitant]
     Active Substance: MAGNESIUM CHLORIDE
  287. METHYLPREDNISOLONE [Concomitant]
     Active Substance: METHYLPREDNISOLONE
     Indication: Product used for unknown indication
  288. MINOCYCLINE [Concomitant]
     Active Substance: MINOCYCLINE HYDROCHLORIDE
     Indication: Product used for unknown indication
  289. MYRBETRIQ [Concomitant]
     Active Substance: MIRABEGRON
     Indication: Product used for unknown indication
  290. NAPROXEN [Concomitant]
     Active Substance: NAPROXEN
     Indication: Product used for unknown indication
  291. NUCALA [Concomitant]
     Active Substance: MEPOLIZUMAB
     Indication: Product used for unknown indication
  292. OTEZLA [Concomitant]
     Active Substance: APREMILAST
     Indication: Rheumatoid arthritis
  293. OTEZLA [Concomitant]
     Active Substance: APREMILAST
     Indication: Psoriasis
  294. OTEZLA [Concomitant]
     Active Substance: APREMILAST
  295. OTEZLA [Concomitant]
     Active Substance: APREMILAST
  296. OTEZLA [Concomitant]
     Active Substance: APREMILAST
  297. PSEUDOEPHEDRINE HYDROCHLORIDE [Concomitant]
     Active Substance: PSEUDOEPHEDRINE HYDROCHLORIDE
     Indication: Rheumatoid arthritis
  298. PSEUDOEPHEDRINE HYDROCHLORIDE [Concomitant]
     Active Substance: PSEUDOEPHEDRINE HYDROCHLORIDE
  299. PSEUDOEPHEDRINE HYDROCHLORIDE [Concomitant]
     Active Substance: PSEUDOEPHEDRINE HYDROCHLORIDE
  300. SULFASALAZINE [Concomitant]
     Active Substance: SULFASALAZINE
     Indication: Product used for unknown indication
  301. CELECOXIB [Concomitant]
     Active Substance: CELECOXIB
     Indication: Product used for unknown indication
  302. CELECOXIB [Concomitant]
     Active Substance: CELECOXIB
  303. PANTOPRAZOLE SODIUM [Concomitant]
     Active Substance: PANTOPRAZOLE SODIUM
     Indication: Dyspepsia
  304. PANTOPRAZOLE SODIUM [Concomitant]
     Active Substance: PANTOPRAZOLE SODIUM
  305. SULFAMETHOXAZOLE [Concomitant]
     Active Substance: SULFAMETHOXAZOLE
     Indication: Product used for unknown indication
  306. SULFAMETHOXAZOLE [Concomitant]
     Active Substance: SULFAMETHOXAZOLE
  307. TRAMADOL HYDROCHLORIDE [Concomitant]
     Active Substance: TRAMADOL HYDROCHLORIDE
     Indication: Product used for unknown indication
  308. TRETINOIN [Concomitant]
     Active Substance: TRETINOIN
     Indication: Product used for unknown indication
  309. TYLENOL [Concomitant]
     Active Substance: ACETAMINOPHEN
     Indication: Product used for unknown indication
  310. VENTOLIN [Concomitant]
     Active Substance: ALBUTEROL SULFATE
     Indication: Product used for unknown indication
  311. XELJANZ [Concomitant]
     Active Substance: TOFACITINIB CITRATE
     Indication: Rheumatoid arthritis
  312. ZOPICLONE [Concomitant]
     Active Substance: ZOPICLONE
     Indication: Product used for unknown indication

REACTIONS (46)
  - Bone erosion [Unknown]
  - Bronchitis [Unknown]
  - C-reactive protein abnormal [Unknown]
  - Crohn^s disease [Unknown]
  - Drug-induced liver injury [Unknown]
  - Ear infection [Unknown]
  - Ear pain [Unknown]
  - Hepatic cirrhosis [Unknown]
  - Joint stiffness [Unknown]
  - Laryngitis [Unknown]
  - Medication error [Unknown]
  - Prescribed overdose [Unknown]
  - Tachycardia [Unknown]
  - Therapy non-responder [Unknown]
  - Ulcer haemorrhage [Unknown]
  - Upper respiratory tract infection [Unknown]
  - Hospitalisation [Unknown]
  - Adverse event [Unknown]
  - Off label use [Unknown]
  - Abdominal pain upper [Unknown]
  - Anti-cyclic citrullinated peptide antibody positive [Unknown]
  - Arthralgia [Unknown]
  - Asthenia [Unknown]
  - Back injury [Unknown]
  - Blepharospasm [Unknown]
  - Blister [Unknown]
  - Breast cancer stage II [Unknown]
  - Breast cancer stage III [Unknown]
  - Bursitis [Unknown]
  - C-reactive protein increased [Unknown]
  - Dislocation of vertebra [Unknown]
  - Exostosis [Unknown]
  - Feeling hot [Unknown]
  - Frequent bowel movements [Unknown]
  - Gastrooesophageal reflux disease [Unknown]
  - Inflammation [Unknown]
  - Joint range of motion decreased [Unknown]
  - Lupus vulgaris [Unknown]
  - Musculoskeletal pain [Unknown]
  - Osteoporosis [Unknown]
  - Pericarditis [Unknown]
  - Psoriatic arthropathy [Unknown]
  - Pyrexia [Unknown]
  - Red blood cell sedimentation rate increased [Unknown]
  - Retinitis [Unknown]
  - Visual impairment [Unknown]
